FAERS Safety Report 20035968 (Version 1)
Quarter: 2021Q4

REPORT INFORMATION
  Report Type: Spontaneous
  Country: ES (occurrence: ES)
  Receive Date: 20211105
  Receipt Date: 20211105
  Transmission Date: 20220303
  Serious: Yes (Life-Threatening, Other)
  Sender: FDA-Public Use
  Company Number: ES-AEMPS-390673

PATIENT
  Age: 58 Year
  Sex: Male

DRUGS (19)
  1. FUROSEMIDE [Interacting]
     Active Substance: FUROSEMIDE
     Indication: Product used for unknown indication
     Dosage: 40 MILLIGRAM, ONCE A DAY(40 MG, QD)
     Route: 048
     Dates: start: 20180724, end: 20180816
  2. GASTROGRAFIN [Interacting]
     Active Substance: DIATRIZOATE MEGLUMINE\DIATRIZOATE SODIUM
     Indication: Computerised tomogram abdomen
     Dosage: UNK(PARA LA REALIZACI???N DE VARIOS TAC ABDOMINALES)
     Route: 048
     Dates: start: 20180723
  3. CILASTATIN SODIUM\IMIPENEM [Interacting]
     Active Substance: CILASTATIN SODIUM\IMIPENEM
     Indication: Pancreatitis acute
     Dosage: PRIMERO CADA 6 HORAS, EL 16/08/2018 CADA 8 HORAS Y EL 17/08/2018 CADA 12 HORAS
     Route: 042
     Dates: start: 20180721, end: 20180823
  4. VANCOMYCIN [Interacting]
     Active Substance: VANCOMYCIN
     Indication: Pancreatitis acute
     Dosage: 1 GRAM, TWO TIMES A DAY
     Route: 042
     Dates: start: 20180731, end: 20180816
  5. ENALAPRIL\HYDROCHLOROTHIAZIDE [Interacting]
     Active Substance: ENALAPRIL\HYDROCHLOROTHIAZIDE
     Indication: Hypertension
     Dosage: 1 DOSAGE FORM(V)
     Route: 048
     Dates: start: 20180721, end: 20180816
  6. AMOXICILLIN\CLAVULANIC ACID [Concomitant]
     Active Substance: AMOXICILLIN\CLAVULANIC ACID
     Indication: Product used for unknown indication
     Dosage: UNK
     Route: 042
     Dates: start: 20180719, end: 20180719
  7. ENOXAPARIN SODIUM [Concomitant]
     Active Substance: ENOXAPARIN SODIUM
     Indication: Product used for unknown indication
     Dosage: UNK
     Route: 058
  8. FLUOXETINE [Concomitant]
     Active Substance: FLUOXETINE HYDROCHLORIDE
     Indication: Product used for unknown indication
     Route: 048
  9. ACETAMINOPHEN [Concomitant]
     Active Substance: ACETAMINOPHEN
     Indication: Pyrexia
     Dosage: 1 GRAM, 3 TIMES A DAY
     Route: 042
     Dates: start: 20180722, end: 20180725
  10. Nolotil [Concomitant]
     Indication: Product used for unknown indication
     Route: 042
  11. Nerdipina [Concomitant]
     Indication: Hypertension
     Dosage: 20 MILLIGRAM(AL DESAYUNO)
     Route: 048
     Dates: start: 201807, end: 20180816
  12. OMEPRAZOLE [Concomitant]
     Active Substance: OMEPRAZOLE
     Indication: Product used for unknown indication
     Dosage: UNK
     Route: 016
  13. KONAKION [Concomitant]
     Active Substance: PHYTONADIONE
     Indication: Product used for unknown indication
     Dosage: UNK
     Route: 042
  14. PRIMPERAN [Concomitant]
     Active Substance: METOCLOPRAMIDE HYDROCHLORIDE
     Indication: Product used for unknown indication
     Dosage: UNK
     Route: 042
  15. FLUCONAZOLE [Concomitant]
     Active Substance: FLUCONAZOLE
     Indication: Product used for unknown indication
     Dosage: UNK
     Route: 042
     Dates: start: 20180813
  16. LORMETAZEPAM [Concomitant]
     Active Substance: LORMETAZEPAM
     Indication: Product used for unknown indication
     Dosage: UNK
     Route: 048
  17. INSULIN NOS [Concomitant]
     Active Substance: INSULIN NOS
     Indication: Product used for unknown indication
     Dosage: UNK(INSULINA R???PIDA EN SUEROS)
     Route: 042
  18. TRAMADOL HYDROCHLORIDE [Concomitant]
     Active Substance: TRAMADOL HYDROCHLORIDE
     Indication: Product used for unknown indication
     Route: 042
  19. PIPERACILLIN SODIUM\TAZOBACTAM SODIUM [Concomitant]
     Active Substance: PIPERACILLIN SODIUM\TAZOBACTAM SODIUM
     Indication: Pancreatitis acute
     Dosage: 4G/6H
     Route: 042
     Dates: start: 20180721, end: 20180721

REACTIONS (1)
  - Nephropathy toxic [Unknown]

NARRATIVE: CASE EVENT DATE: 20180815
